FAERS Safety Report 12586976 (Version 1)
Quarter: 2016Q3

REPORT INFORMATION
  Report Type: Spontaneous
  Country: US (occurrence: US)
  Receive Date: 20160725
  Receipt Date: 20160725
  Transmission Date: 20161109
  Serious: Yes (Other)
  Sender: FDA-Public Use
  Company Number: US-SA-2016SA134118

PATIENT
  Age: 68 Year
  Sex: Female

DRUGS (4)
  1. RENAGEL [Suspect]
     Active Substance: SEVELAMER HYDROCHLORIDE
     Indication: RENAL FAILURE
     Route: 065
     Dates: start: 2015
  2. RENAGEL [Suspect]
     Active Substance: SEVELAMER HYDROCHLORIDE
     Indication: RENAL FAILURE
     Route: 065
     Dates: start: 2003
  3. RENAGEL [Suspect]
     Active Substance: SEVELAMER HYDROCHLORIDE
     Indication: BLOOD PHOSPHORUS INCREASED
     Route: 065
     Dates: start: 2015
  4. RENAGEL [Suspect]
     Active Substance: SEVELAMER HYDROCHLORIDE
     Indication: BLOOD PHOSPHORUS INCREASED
     Route: 065
     Dates: start: 2003

REACTIONS (1)
  - Vaginal cancer [Unknown]
